FAERS Safety Report 13764772 (Version 1)
Quarter: 2017Q3

REPORT INFORMATION
  Report Type: Report from Study
  Country: None (occurrence: IN)
  Receive Date: 20170718
  Receipt Date: 20170718
  Transmission Date: 20171127
  Serious: Yes (Other)
  Sender: FDA-Public Use
  Company Number: IN-ABBVIE-17P-078-2040832-00

PATIENT
  Sex: Female

DRUGS (1)
  1. THYRONORM [Suspect]
     Active Substance: LEVOTHYROXINE
     Indication: HYPOTHYROIDISM
     Dosage: 125MCG
     Route: 048

REACTIONS (1)
  - Thyroid cancer [Unknown]
